FAERS Safety Report 10628266 (Version 1)
Quarter: 2014Q4

REPORT INFORMATION
  Report Type: Spontaneous
  Country: US (occurrence: US)
  Receive Date: 20141205
  Receipt Date: 20141205
  Transmission Date: 20150529
  Serious: Yes (Hospitalization)
  Sender: FDA-Public Use
  Company Number: US-BRISTOL-MYERS SQUIBB COMPANY-21602511

PATIENT
  Age: 56 Year
  Sex: Female
  Weight: 86.2 kg

DRUGS (17)
  1. SPIRONOLACTONE. [Concomitant]
     Active Substance: SPIRONOLACTONE
  2. BENADRYL [Concomitant]
     Active Substance: DIPHENHYDRAMINE HYDROCHLORIDE
  3. ASPIRIN. [Concomitant]
     Active Substance: ASPIRIN
  4. VICODIN [Concomitant]
     Active Substance: ACETAMINOPHEN\HYDROCODONE BITARTRATE
  5. GABAPENTIN. [Concomitant]
     Active Substance: GABAPENTIN
  6. OXYGEN. [Concomitant]
     Active Substance: OXYGEN
  7. COUMADIN [Suspect]
     Active Substance: WARFARIN SODIUM
     Indication: PULMONARY ARTERIAL HYPERTENSION
     Route: 048
     Dates: end: 20140129
  8. FOLIC ACID. [Concomitant]
     Active Substance: FOLIC ACID
  9. VASOPRESSIN. [Concomitant]
     Active Substance: VASOPRESSIN
  10. FLUTICASONE [Concomitant]
     Active Substance: FLUTICASONE\FLUTICASONE PROPIONATE
  11. AMBRISENTAN [Concomitant]
     Active Substance: AMBRISENTAN
  12. MORPHINE [Concomitant]
     Active Substance: MORPHINE
  13. DIPYRIDAMOLE. [Concomitant]
     Active Substance: DIPYRIDAMOLE
  14. AZELASTINE [Concomitant]
     Active Substance: AZELASTINE
  15. KEPPRA [Concomitant]
     Active Substance: LEVETIRACETAM
  16. ESTRADIOL. [Concomitant]
     Active Substance: ESTRADIOL
  17. TREPROSTINIL [Concomitant]
     Active Substance: TREPROSTINIL

REACTIONS (2)
  - Subdural haematoma [Recovered/Resolved]
  - International normalised ratio increased [Recovered/Resolved]

NARRATIVE: CASE EVENT DATE: 20140129
